FAERS Safety Report 4978428-0 (Version None)
Quarter: 2006Q1

REPORT INFORMATION
  Report Type: 
  Country: None (occurrence: None)
  Receive Date: 20060227
  Receipt Date: 20050221
  Transmission Date: 20060701
  Serious: Yes (Disabling)
  Sender: FDA-Public Use
  Company Number: WAES 0502USA02607

PATIENT
  Age: 62 Year
  Sex: Female

DRUGS (2)
  1. ZOCOR [Suspect]
     Indication: BLOOD CHOLESTEROL INCREASED
     Dosage: 20 MG/DAILY/PO
     Route: 048
     Dates: start: 20020101, end: 20030101
  2. CLARITIN-D [Concomitant]

REACTIONS (1)
  - MUSCLE SPASMS [None]
